FAERS Safety Report 12417811 (Version 1)
Quarter: 2016Q2

REPORT INFORMATION
  Report Type: Report from Study
  Country: US (occurrence: US)
  Receive Date: 20160530
  Receipt Date: 20160530
  Transmission Date: 20160815
  Serious: Yes (Other)
  Sender: FDA-Public Use
  Company Number: US-AMGEN-USASL2016066766

PATIENT
  Age: 38 Year
  Sex: Female

DRUGS (2)
  1. ENBREL [Suspect]
     Active Substance: ETANERCEPT
     Indication: PRODUCT USED FOR UNKNOWN INDICATION
     Dosage: UNK
     Route: 065
  2. OMEGA XL [Concomitant]
     Active Substance: DIETARY SUPPLEMENT
     Dosage: UNK

REACTIONS (12)
  - Chills [Not Recovered/Not Resolved]
  - Pneumonia [Unknown]
  - Burning sensation [Unknown]
  - Dyspepsia [Unknown]
  - Pain [Unknown]
  - Migraine [Unknown]
  - Infected skin ulcer [Unknown]
  - Malaise [Unknown]
  - Feeling of body temperature change [Not Recovered/Not Resolved]
  - Nasopharyngitis [Unknown]
  - Chest pain [Unknown]
  - Influenza [Unknown]

NARRATIVE: CASE EVENT DATE: 201603
